FAERS Safety Report 8199162-2 (Version None)
Quarter: 2012Q1

REPORT INFORMATION
  Report Type: 
  Country: None (occurrence: None)
  Receive Date: 20120309
  Receipt Date: 20120308
  Transmission Date: 20120608
  Serious: No
  Sender: FDA-Public Use
  Company Number: US-PFIZER INC-2012062579

PATIENT
  Sex: Male
  Weight: 117.91 kg

DRUGS (1)
  1. CHANTIX [Suspect]
     Indication: SMOKING CESSATION THERAPY
     Dosage: UNK, ONCE
     Route: 048
     Dates: start: 20120304, end: 20120305

REACTIONS (1)
  - OEDEMA PERIPHERAL [None]
